FAERS Safety Report 9053737 (Version 1)
Quarter: 2013Q1

REPORT INFORMATION
  Report Type: Report from Study
  Country: GB (occurrence: GB)
  Receive Date: 20130208
  Receipt Date: 20130208
  Transmission Date: 20140127
  Serious: Yes (Hospitalization)
  Sender: FDA-Public Use
  Company Number: GB-AMGEN-GBRCT2013008166

PATIENT
  Age: 57 Year
  Sex: Male

DRUGS (2)
  1. ETANERCEPT [Suspect]
     Indication: RHEUMATOID ARTHRITIS
     Dosage: 25 MG, 2X/WEEK
     Dates: start: 20011122
  2. METHOTREXATE [Concomitant]
     Dosage: UNK
     Dates: start: 200609

REACTIONS (1)
  - Tibia fracture [Unknown]
